FAERS Safety Report 5887517-8 (Version None)
Quarter: 2008Q3

REPORT INFORMATION
  Report Type: 
  Country: None (occurrence: None)
  Receive Date: 20080918
  Receipt Date: 20080910
  Transmission Date: 20090109
  Serious: Yes (Hospitalization, Disabling, Other)
  Sender: FDA-Public Use
  Company Number: PHHY2008GB13716

PATIENT
  Sex: Female

DRUGS (4)
  1. ZOMETA [Suspect]
     Indication: METASTASES TO BONE
     Dosage: 4 MG, UNK
     Dates: start: 20060401, end: 20080201
  2. HERCEPTIN [Concomitant]
     Indication: BREAST CANCER METASTATIC
     Dosage: 273 MG 3 WEEKLY
     Route: 042
     Dates: start: 20060405
  3. ANASTROZOLE [Concomitant]
     Indication: BREAST CANCER METASTATIC
     Dosage: 1 MG/DAILY
     Route: 048
     Dates: start: 20080608
  4. TAXOTERE [Concomitant]
     Indication: BREAST CANCER METASTATIC
     Dosage: UNK
     Route: 042
     Dates: start: 20060301, end: 20060701

REACTIONS (10)
  - BONE DISORDER [None]
  - BONE LESION [None]
  - GINGIVAL ERYTHEMA [None]
  - GINGIVAL SWELLING [None]
  - INFECTION [None]
  - ORAL PAIN [None]
  - OSTEONECROSIS [None]
  - PAIN IN JAW [None]
  - PURULENT DISCHARGE [None]
  - SURGERY [None]
